FAERS Safety Report 8086946-4 (Version None)
Quarter: 2012Q1

REPORT INFORMATION
  Report Type: 
  Country: None (occurrence: None)
  Receive Date: 20120128
  Receipt Date: 20110527
  Transmission Date: 20120608
  Serious: No
  Sender: FDA-Public Use
  Company Number: US-ABBOTT-11P-163-0727359-00

PATIENT
  Sex: Male

DRUGS (12)
  1. EXCEDRIN [Concomitant]
     Indication: PRODUCT USED FOR UNKNOWN INDICATION
     Dosage: 250 MG AS NEEDED
  2. LORAZEPAM [Concomitant]
     Indication: ANXIETY
  3. PREDNISONE TAB [Concomitant]
     Indication: RHEUMATOID ARTHRITIS
     Dosage: 5 MG - THREE IN AM
  4. FLUOXETINE [Concomitant]
     Indication: PRODUCT USED FOR UNKNOWN INDICATION
  5. IBUPROFEN [Concomitant]
     Indication: PAIN
     Dosage: 800 MG AS NEEDED
  6. GABAPENTIN [Concomitant]
     Indication: PAIN
     Dosage: 600 MG DAILY
  7. VENLAFAXINE HCL EXTENDED-RELEASE [Concomitant]
     Indication: MAJOR DEPRESSION
     Dosage: 3 TABS - 37.5 MG - TID
  8. BENADRYL [Concomitant]
     Indication: INSOMNIA
     Dosage: HS
  9. LEVOTHROID [Concomitant]
     Indication: BLOOD THYROID STIMULATING HORMONE DECREASED
     Dosage: 88 MICROGRAMS DAILY
  10. HYDROCODONE BITARTRATE AND ACETAMINOPHEN [Concomitant]
     Indication: PAIN
     Dosage: 7.5/750 AS NEEDED
  11. HUMIRA [Suspect]
     Indication: RHEUMATOID ARTHRITIS
     Dates: start: 20110310
  12. LEFLUNOMIDE [Concomitant]
     Indication: ARTHRITIS
     Dosage: 3 MILLIGRAMS

REACTIONS (7)
  - MOBILITY DECREASED [None]
  - INJECTION SITE PAIN [None]
  - ARTHRITIS [None]
  - OEDEMA PERIPHERAL [None]
  - LOCALISED OEDEMA [None]
  - JOINT SWELLING [None]
  - ARTHRALGIA [None]
